FAERS Safety Report 18800242 (Version 1)
Quarter: 2021Q1

REPORT INFORMATION
  Report Type: Spontaneous
  Country: US (occurrence: US)
  Receive Date: 20210128
  Receipt Date: 20210128
  Transmission Date: 20210419
  Serious: Yes (Other)
  Sender: FDA-Public Use
  Company Number: US-PFIZER INC-2021072629

PATIENT
  Age: 77 Year
  Sex: Female

DRUGS (1)
  1. XELJANZ XR [Suspect]
     Active Substance: TOFACITINIB CITRATE
     Indication: RHEUMATOID ARTHRITIS
     Dosage: 11 MG, 1X/DAY (BEEN ON XELJANZ XR ABOUT 3 YEARS)
     Route: 048

REACTIONS (4)
  - Spinal fracture [Unknown]
  - Pain in extremity [Unknown]
  - Limb discomfort [Unknown]
  - Paralysis [Unknown]

NARRATIVE: CASE EVENT DATE: 2020
